FAERS Safety Report 8180107-6 (Version None)
Quarter: 2012Q1

REPORT INFORMATION
  Report Type: 
  Country: None (occurrence: None)
  Receive Date: 20120302
  Receipt Date: 20120302
  Transmission Date: 20120608
  Serious: Yes (Other)
  Sender: FDA-Public Use
  Company Number: None

PATIENT
  Age: 27 Year
  Sex: Male
  Weight: 77.11 kg

DRUGS (2)
  1. OXYCONTIN [Concomitant]
  2. OPANA [Suspect]
     Dosage: SEE STATEMENT

REACTIONS (3)
  - DRUG TOLERANCE INCREASED [None]
  - DRUG EFFECT DECREASED [None]
  - DRUG ABUSE [None]
